FAERS Safety Report 7386446-0 (Version None)
Quarter: 2011Q1

REPORT INFORMATION
  Report Type: 
  Country: None (occurrence: None)
  Receive Date: 20110323
  Receipt Date: 20110308
  Transmission Date: 20110831
  Serious: Yes (Other)
  Sender: FDA-Public Use
  Company Number: 20100403

PATIENT
  Age: 52 Year
  Sex: Female

DRUGS (4)
  1. METHYLENE BLUE INJECTION, USP (0310-10) (METHYLENE BLUE) 1% [Suspect]
     Indication: PARATHYROID DISORDER
     Dosage: 7.5 MG/KG (650 MG INTRAVENOUS DRIP)
     Route: 041
  2. VENLAFAXINE HCL [Suspect]
     Route: 041
  3. FERROUS SULFATE TAB [Concomitant]
  4. MEBEVERINE [Concomitant]

REACTIONS (8)
  - OFF LABEL USE [None]
  - NYSTAGMUS [None]
  - CONFUSIONAL STATE [None]
  - BLOOD CALCIUM DECREASED [None]
  - DELAYED RECOVERY FROM ANAESTHESIA [None]
  - TOXICITY TO VARIOUS AGENTS [None]
  - APHASIA [None]
  - DRUG INTERACTION [None]
